FAERS Safety Report 13674099 (Version 1)
Quarter: 2017Q2

REPORT INFORMATION
  Report Type: Spontaneous
  Country: US (occurrence: US)
  Receive Date: 20170620
  Receipt Date: 20170620
  Transmission Date: 20170830
  Serious: Yes (Other)
  Sender: FDA-Public Use
  Company Number: None

PATIENT
  Age: 59 Year
  Sex: Female
  Weight: 86.2 kg

DRUGS (4)
  1. SOLU-MEDROL [Suspect]
     Active Substance: METHYLPREDNISOLONE SODIUM SUCCINATE
     Indication: INTERVERTEBRAL DISC PROTRUSION
     Dosage: ?          OTHER FREQUENCY:ONE TIME;?
     Dates: start: 20170620, end: 20170620
  2. ALBUTEROL INHALER [Concomitant]
     Active Substance: ALBUTEROL
  3. CITALOPRAM [Concomitant]
     Active Substance: CITALOPRAM HYDROBROMIDE
  4. LUNESTA [Concomitant]
     Active Substance: ESZOPICLONE

REACTIONS (1)
  - Presyncope [None]

NARRATIVE: CASE EVENT DATE: 20170620
